FAERS Safety Report 4817176-4 (Version None)
Quarter: 2005Q4

REPORT INFORMATION
  Report Type: 
  Country: None (occurrence: None)
  Receive Date: 20051101
  Receipt Date: 20050614
  Transmission Date: 20060501
  Serious: Yes (Other)
  Sender: FDA-Public Use
  Company Number: PHEH2005US06750

PATIENT
  Age: 60 Year
  Sex: Male

DRUGS (9)
  1. ZOMETA [Suspect]
     Indication: METASTASES TO BONE
     Dosage: 4 MG IV Q3-4WK
     Route: 042
     Dates: start: 20040429, end: 20050429
  2. GEMZAR [Concomitant]
  3. ARANESP [Concomitant]
  4. KYTRIL [Concomitant]
  5. OXYCODONE AND ASPIRIN [Concomitant]
     Indication: PAIN
     Dosage: 5/325MG PRN
  6. DIOVAN [Concomitant]
     Dosage: 80 MG, QD
  7. COUMADIN [Concomitant]
  8. UROXATRAL [Concomitant]
     Dosage: 10MG QHS
  9. CIPRO [Concomitant]

REACTIONS (3)
  - BONE DISORDER [None]
  - EDENTULOUS [None]
  - OSTEONECROSIS [None]
